FAERS Safety Report 5762594-3 (Version None)
Quarter: 2008Q2

REPORT INFORMATION
  Report Type: 
  Country: None (occurrence: None)
  Receive Date: 20080609
  Receipt Date: 20080528
  Transmission Date: 20081010
  Serious: Yes (Other)
  Sender: FDA-Public Use
  Company Number: LB-GENENTECH-260809

PATIENT
  Age: 19 Year
  Sex: Female

DRUGS (1)
  1. MABTHERA [Suspect]
     Indication: LYMPHOMA
     Dosage: UNK, 1/WEEK
     Route: 037
     Dates: start: 20080503, end: 20080503

REACTIONS (1)
  - PETIT MAL EPILEPSY [None]
